FAERS Safety Report 16309342 (Version 1)
Quarter: 2019Q2

REPORT INFORMATION
  Report Type: Spontaneous
  Country: US (occurrence: US)
  Receive Date: 20190408
  Receipt Date: 20190408
  Transmission Date: 20190711
  Serious: Yes (Hospitalization)
  Sender: FDA-Public Use
  Company Number: None

PATIENT
  Age: 22 Year
  Sex: Male

DRUGS (1)
  1. NEULASTA [Suspect]
     Active Substance: PEGFILGRASTIM
     Dates: start: 201901

REACTIONS (3)
  - Stomatitis [None]
  - Oral infection [None]
  - Blood count abnormal [None]

NARRATIVE: CASE EVENT DATE: 20190307
